FAERS Safety Report 5977487-6 (Version None)
Quarter: 2008Q4

REPORT INFORMATION
  Report Type: 
  Country: None (occurrence: None)
  Receive Date: 20081124
  Receipt Date: 20081111
  Transmission Date: 20090506
  Serious: Yes (Hospitalization)
  Sender: FDA-Public Use
  Company Number: 2008S1000388

PATIENT
  Age: 69 Year
  Sex: Male
  Weight: 80 kg

DRUGS (11)
  1. CUBICIN [Suspect]
     Indication: EVIDENCE BASED TREATMENT
     Dosage: 6 MG/KG;Q24H; IV
     Route: 030
     Dates: start: 20081022, end: 20081022
  2. SYNTHROID [Concomitant]
  3. LOPRESSOR [Concomitant]
  4. PROTONIX /01263202/ [Concomitant]
  5. DUONEB [Concomitant]
  6. SENOKOT /00571901/ [Concomitant]
  7. LORAZEPAM [Concomitant]
  8. HEPARIN [Concomitant]
  9. NARCAN [Concomitant]
  10. NUBAIN /00534802/ [Concomitant]
  11. ZOFRAN /00955302/ [Concomitant]

REACTIONS (7)
  - BLOOD CALCIUM ABNORMAL [None]
  - BLOOD MAGNESIUM ABNORMAL [None]
  - BLOOD PHOSPHORUS ABNORMAL [None]
  - DIALYSIS [None]
  - HYPOTENSION [None]
  - RENAL FAILURE ACUTE [None]
  - RENAL TUBULAR NECROSIS [None]
